FAERS Safety Report 19912408 (Version 1)
Quarter: 2021Q4

REPORT INFORMATION
  Report Type: Spontaneous
  Country: US (occurrence: US)
  Receive Date: 20211001
  Receipt Date: 20211001
  Transmission Date: 20220303
  Serious: No
  Sender: FDA-Public Use
  Company Number: None

PATIENT
  Age: 65 Year
  Sex: Female

DRUGS (1)
  1. MEKINIST [Suspect]
     Active Substance: TRAMETINIB DIMETHYL SULFOXIDE
     Route: 048
     Dates: start: 202109

REACTIONS (5)
  - Peripheral swelling [None]
  - Tenderness [None]
  - Feeling hot [None]
  - Surgery [None]
  - Joint swelling [None]

NARRATIVE: CASE EVENT DATE: 20210926
